FAERS Safety Report 6931309-5 (Version None)
Quarter: 2010Q3

REPORT INFORMATION
  Report Type: 
  Country: None (occurrence: None)
  Receive Date: 20100816
  Receipt Date: 20100730
  Transmission Date: 20110219
  Serious: Yes (Other)
  Sender: FDA-Public Use
  Company Number: 1000015503

PATIENT
  Age: 50 Year
  Sex: Female

DRUGS (2)
  1. FOSFOMYCIN (FOSFOMYCIN TROMETAMOL) (GRANULATE) [Suspect]
     Indication: CYSTITIS HAEMORRHAGIC
     Dosage: 3 G (3 GM, 1 IN 1 D), ORAL
     Route: 048
     Dates: start: 20100410, end: 20100412
  2. FOSFOMYCIN (FOSFOMYCIN TROMETAMOL) (GRANULATE) [Suspect]
     Indication: CYSTITIS HAEMORRHAGIC
     Dosage: 3 GM (3 GM, 1 IN 1 D), ORAL
     Route: 048

REACTIONS (2)
  - FLUSHING [None]
  - RESPIRATORY FAILURE [None]
